FAERS Safety Report 15445267 (Version 1)
Quarter: 2018Q3

REPORT INFORMATION
  Report Type: Spontaneous
  Country: US (occurrence: US)
  Receive Date: 20180902
  Receipt Date: 20180902
  Transmission Date: 20181010
  Serious: Yes (Other)
  Sender: FDA-Public Use
  Company Number: None

PATIENT
  Age: 43 Year
  Sex: Female
  Weight: 72 kg

DRUGS (1)
  1. AYR SALINE NASAL GEL WITH ALOE VERA [Suspect]
     Active Substance: SODIUM CHLORIDE
     Indication: NASAL DRYNESS

REACTIONS (3)
  - Staphylococcal infection [None]
  - Instillation site infection [None]
  - Rhinitis [None]
